FAERS Safety Report 8212504-4 (Version None)
Quarter: 2012Q1

REPORT INFORMATION
  Report Type: 
  Country: None (occurrence: None)
  Receive Date: 20120315
  Receipt Date: 20120305
  Transmission Date: 20120608
  Serious: Yes (Hospitalization)
  Sender: FDA-Public Use
  Company Number: JP-GLAXOSMITHKLINE-B0769988A

PATIENT
  Sex: Female
  Weight: 49 kg

DRUGS (32)
  1. XELODA [Suspect]
     Dosage: 2400MG PER DAY
     Route: 048
     Dates: start: 20100625, end: 20100628
  2. LOPERAMIDE HCL [Concomitant]
     Route: 048
     Dates: start: 20100531, end: 20100601
  3. LOPERAMIDE HCL [Concomitant]
     Route: 048
     Dates: start: 20100603, end: 20100613
  4. XELODA [Suspect]
     Indication: BREAST CANCER
     Dosage: 3000MG PER DAY
     Route: 048
     Dates: start: 20100521, end: 20100613
  5. NOVAMINE [Concomitant]
     Indication: PROPHYLAXIS
     Route: 048
     Dates: start: 20100605, end: 20100619
  6. MAGNESIUM SULFATE [Concomitant]
     Indication: CONSTIPATION
     Route: 048
     Dates: start: 20100521
  7. PANTOSIN [Concomitant]
     Indication: CONSTIPATION
     Route: 048
     Dates: start: 20100521
  8. LECICARBON [Concomitant]
     Indication: CONSTIPATION
     Route: 054
     Dates: start: 20100521
  9. SCOPOLAMINE [Concomitant]
     Indication: ABDOMINAL PAIN
     Dates: start: 20100525, end: 20100525
  10. ESTAZOLAM [Concomitant]
     Indication: INSOMNIA
     Route: 048
     Dates: start: 20100521, end: 20100628
  11. ZOLPIDEM [Concomitant]
     Indication: INSOMNIA
     Route: 048
     Dates: start: 20100521, end: 20100628
  12. FUROSEMIDE [Concomitant]
     Indication: OEDEMA
     Route: 048
     Dates: start: 20100521, end: 20100628
  13. LAXOBERON [Concomitant]
     Indication: CONSTIPATION
     Route: 048
     Dates: start: 20100521
  14. TYKERB [Suspect]
     Indication: BREAST CANCER
     Dosage: 1250MG PER DAY
     Route: 048
     Dates: start: 20100521, end: 20100609
  15. VOLTAREN [Concomitant]
     Route: 054
     Dates: start: 20100530, end: 20100620
  16. LENDORMIN [Concomitant]
     Indication: INSOMNIA
     Route: 048
     Dates: start: 20100521, end: 20100628
  17. PURSENNID [Concomitant]
     Route: 048
     Dates: start: 20100611, end: 20100628
  18. TYKERB [Suspect]
     Dosage: 1000MG PER DAY
     Route: 048
     Dates: start: 20100625, end: 20100628
  19. PRIMPERAN TAB [Concomitant]
     Indication: PROPHYLAXIS
     Route: 048
     Dates: start: 20100521, end: 20100628
  20. TYKERB [Suspect]
     Dosage: 1000MG PER DAY
     Route: 048
     Dates: start: 20100610, end: 20100613
  21. ATARAX [Concomitant]
     Indication: DERMATITIS
     Route: 048
     Dates: start: 20100521, end: 20100628
  22. KERATINAMIN [Concomitant]
     Indication: DERMATITIS
     Route: 061
     Dates: start: 20100612, end: 20100628
  23. LANSOPRAZOLE [Concomitant]
     Indication: GASTRITIS PROPHYLAXIS
     Route: 048
     Dates: start: 20100521, end: 20100628
  24. PURSENNID [Concomitant]
     Route: 048
     Dates: start: 20100529, end: 20100530
  25. POSTERISAN [Concomitant]
     Indication: HAEMORRHOIDS
     Route: 061
     Dates: start: 20100521
  26. CELESTAMINE TAB [Concomitant]
     Indication: DERMATITIS
     Route: 048
     Dates: start: 20100521, end: 20100628
  27. RINDERON VG [Concomitant]
     Indication: DERMATITIS
     Route: 061
     Dates: start: 20100521, end: 20100628
  28. OXATOMIDE [Concomitant]
     Indication: RHINITIS ALLERGIC
     Route: 048
     Dates: start: 20100521, end: 20100628
  29. LOPERAMIDE HCL [Concomitant]
     Indication: PROPHYLAXIS AGAINST DIARRHOEA
     Route: 048
     Dates: start: 20100524, end: 20100526
  30. VOLTAREN [Concomitant]
     Indication: BACK PAIN
     Route: 048
     Dates: start: 20100523, end: 20100625
  31. MUCOSTA [Concomitant]
     Route: 048
     Dates: start: 20100521, end: 20100628
  32. LOXONIN [Concomitant]
     Indication: BACK PAIN
     Route: 048
     Dates: start: 20100521, end: 20100628

REACTIONS (3)
  - ARTHRALGIA [None]
  - DIARRHOEA [None]
  - STOMATITIS [None]
